FAERS Safety Report 7427504-1 (Version None)
Quarter: 2011Q2

REPORT INFORMATION
  Report Type: 
  Country: None (occurrence: None)
  Receive Date: 20110420
  Receipt Date: 20110411
  Transmission Date: 20111010
  Serious: Yes (Other)
  Sender: FDA-Public Use
  Company Number: US-BAYER-2011-026614

PATIENT
  Age: 83 Year
  Sex: Female

DRUGS (6)
  1. PREDNISONE [Concomitant]
  2. LEVOTHYROXINE SODIUM [Concomitant]
  3. LISINOPRIL [Concomitant]
  4. METOPROLOL [Concomitant]
  5. AVELOX [Suspect]
     Indication: COUGH
     Dosage: 400 MG, QD
     Route: 048
     Dates: start: 20110322, end: 20110325
  6. METFORMIN HCL [Concomitant]

REACTIONS (4)
  - HYPOAESTHESIA [None]
  - VOMITING [None]
  - CONFUSIONAL STATE [None]
  - HALLUCINATION [None]
